FAERS Safety Report 8351470-8 (Version None)
Quarter: 2012Q2

REPORT INFORMATION
  Report Type: 
  Country: None (occurrence: None)
  Receive Date: 20120510
  Receipt Date: 20120425
  Transmission Date: 20120825
  Serious: Yes (Hospitalization, Other)
  Sender: FDA-Public Use
  Company Number: US-ROCHE-566873

PATIENT
  Sex: Female
  Weight: 68.1 kg

DRUGS (7)
  1. RESTASIS [Concomitant]
     Indication: CONJUNCTIVITIS
     Dosage: OTHER INDICATION: BREAST CANCER TO EYE
     Route: 047
  2. FAMVIR [Concomitant]
     Dosage: FOR SEVEN DAYS; AS REQUIRED
     Route: 048
  3. LOVENOX [Concomitant]
     Indication: HYPERCOAGULATION
     Route: 058
  4. THYROID TAB [Concomitant]
     Indication: HYPOTHYROIDISM
     Dosage: EVERY DAY
     Route: 048
  5. XELODA [Suspect]
     Indication: BREAST CANCER METASTATIC
     Dosage: 1500-1000 DOSE, BID VARIED
     Route: 048
  6. XELODA [Suspect]
  7. HEPARIN [Suspect]
     Indication: ANTICOAGULANT THERAPY
     Route: 065

REACTIONS (10)
  - BURNING SENSATION [None]
  - HEPATIC ENZYME INCREASED [None]
  - LIVER FUNCTION TEST ABNORMAL [None]
  - PALMAR-PLANTAR ERYTHRODYSAESTHESIA SYNDROME [None]
  - PULMONARY THROMBOSIS [None]
  - PULMONARY EMBOLISM [None]
  - DEEP VEIN THROMBOSIS [None]
  - UNEVALUABLE EVENT [None]
  - NAUSEA [None]
  - ERYTHEMA [None]
